FAERS Safety Report 6072877-8 (Version None)
Quarter: 2009Q1

REPORT INFORMATION
  Report Type: 
  Country: None (occurrence: None)
  Receive Date: 20090205
  Receipt Date: 20090118
  Transmission Date: 20090719
  Serious: Yes (Life-Threatening, Hospitalization)
  Sender: FDA-Public Use
  Company Number: TCI2009A00106

PATIENT
  Age: 52 Year
  Sex: Male

DRUGS (15)
  1. ACTOS [Suspect]
     Indication: TYPE 2 DIABETES MELLITUS
     Dosage: 15 MG (15 MG, 1 IN 1 D)
     Route: 048
     Dates: start: 20080214, end: 20080220
  2. GLUCOBAY [Concomitant]
  3. THEOLONG (THEOPHYLLINE) [Concomitant]
  4. SINGULAIR [Concomitant]
  5. CLARITHROMYCIN [Concomitant]
  6. LIPITOR [Concomitant]
  7. NOVOLIN R FLEXPEN (INSULIN HUMAN) [Concomitant]
  8. PULMICORT 200 TURBUHALER (BUDESONIDE) [Concomitant]
  9. INTAL AEROSOL A (CROMOGLICATE SODIUM) [Concomitant]
  10. VENETLIN (SALBUTAMOL SULFATE) [Concomitant]
  11. SOL-MELCORT (METHYLPREDNISOLONE SUCCINATE) [Concomitant]
  12. PREDNISOLONE [Concomitant]
  13. SEREVENT DISKUS (SALMETEROL XINAFOATE) [Concomitant]
  14. SLOWHEIM (ZOPICLONE) [Concomitant]
  15. HEPAFLUSH (HEPARIN SODIUM) [Concomitant]

REACTIONS (5)
  - HEADACHE [None]
  - LUNG DISORDER [None]
  - MYCOPLASMA SEROLOGY POSITIVE [None]
  - RESPIRATORY TRACT INFECTION [None]
  - STATUS ASTHMATICUS [None]
